FAERS Safety Report 15924419 (Version 2)
Quarter: 2019Q1

REPORT INFORMATION
  Report Type: Spontaneous
  Country: US (occurrence: US)
  Receive Date: 20190206
  Receipt Date: 20190206
  Transmission Date: 20190417
  Serious: Yes (Other)
  Sender: FDA-Public Use
  Company Number: US-MACLEODS PHARMACEUTICALS US LTD-MAC2019019788

PATIENT

DRUGS (3)
  1. LOSARTAN POTASSIUM/HYDROCHLOROTHIAZID E TABLET 100 MG/25 MG [Suspect]
     Active Substance: HYDROCHLOROTHIAZIDE\LOSARTAN POTASSIUM
     Indication: PRODUCT USED FOR UNKNOWN INDICATION
     Dosage: UNK, LOSARTAN POTASSIUM HYDROCHLOROTHIAZIDE
     Route: 065
  2. LOSARTAN POTASSIUM/HYDROCHLOROTHIAZIDE TABLET 100 MG/25 MG [Suspect]
     Active Substance: HYDROCHLOROTHIAZIDE\LOSARTAN POTASSIUM
     Dosage: UNK, LOSARTAN POTASSIUM 100/HYDROCHLOROTHIAZIDE 25 MG
     Route: 048
  3. LOSARTAN POTASSIUM/HYDROCHLOROTHIAZIDE TABLET 100 MG/25 MG [Suspect]
     Active Substance: HYDROCHLOROTHIAZIDE\LOSARTAN POTASSIUM
     Dosage: UNK, LOSARTAN POTASSIUM 100/HYDROCHLOROTHIAZIDE 25 MG
     Route: 048
     Dates: start: 201810, end: 201812

REACTIONS (2)
  - Hypertension [Recovered/Resolved]
  - Product substitution issue [None]

NARRATIVE: CASE EVENT DATE: 20190116
